FAERS Safety Report 17488986 (Version 20)
Quarter: 2020Q2

REPORT INFORMATION
  Report Type: Report from Study
  Country: CN (occurrence: CN)
  Receive Date: 20200303
  Receipt Date: 20200618
  Transmission Date: 20200713
  Serious: Yes (Hospitalization)
  Sender: FDA-Public Use
  Company Number: CN-EISAI MEDICAL RESEARCH-EC-2020-071095

PATIENT
  Age: 53 Year
  Sex: Female
  Weight: 68 kg

DRUGS (14)
  1. PEMBROLIZUMAB. [Suspect]
     Active Substance: PEMBROLIZUMAB
     Route: 041
     Dates: start: 20200204, end: 20200204
  2. LOSARTAN POTASSIUM. [Concomitant]
     Active Substance: LOSARTAN POTASSIUM
     Dates: start: 201906, end: 20200510
  3. WEBBER NATURALS OMEGA 3-6-9 WITH FISH OIL [Concomitant]
     Dates: start: 20200215, end: 20200327
  4. AMLODIPINE BESYLATE. [Concomitant]
     Active Substance: AMLODIPINE BESYLATE
     Dates: start: 20200128, end: 20200224
  5. LENVATINIB [Suspect]
     Active Substance: LENVATINIB
     Route: 048
     Dates: start: 20200224, end: 20200224
  6. FU FANG LU JI DING HAN SHU YE [Concomitant]
     Dates: start: 20200110, end: 20200217
  7. YI QING JIAO NANG [Concomitant]
     Dates: start: 20200121, end: 20200213
  8. LENVATINIB [Suspect]
     Active Substance: LENVATINIB
     Indication: ENDOMETRIAL CANCER
     Dosage: STARTING AT 20 MG, FLUCTUATED DOSAGE
     Route: 048
     Dates: start: 20191224, end: 20200223
  9. CALCIUM + MAGNESIUM + VITAMIN D [Concomitant]
     Dates: start: 20200215, end: 20200408
  10. PEMBROLIZUMAB. [Suspect]
     Active Substance: PEMBROLIZUMAB
     Indication: ENDOMETRIAL CANCER
     Route: 041
     Dates: start: 20191224, end: 20200115
  11. ATORVASTATIN CALCIUM. [Concomitant]
     Active Substance: ATORVASTATIN CALCIUM
     Dates: start: 201906
  12. FENOFIBRATE. [Concomitant]
     Active Substance: FENOFIBRATE
     Dates: start: 20200108, end: 20200224
  13. NEOMYCIN SULFATE. [Concomitant]
     Active Substance: NEOMYCIN SULFATE
     Dates: start: 20200127, end: 20200225
  14. ASCORBIC ACID. [Concomitant]
     Active Substance: ASCORBIC ACID
     Dates: start: 20200215, end: 20200329

REACTIONS (1)
  - Immune-mediated hepatitis [Recovered/Resolved]

NARRATIVE: CASE EVENT DATE: 20200224
